FAERS Safety Report 12221809 (Version 2)
Quarter: 2016Q2

REPORT INFORMATION
  Report Type: Spontaneous
  Country: US (occurrence: US)
  Receive Date: 20160330
  Receipt Date: 20160405
  Transmission Date: 20160815
  Serious: Yes (Hospitalization, Other)
  Sender: FDA-Public Use
  Company Number: US-PFIZER INC-2016182775

PATIENT
  Age: 84 Year
  Sex: Female
  Weight: 57.6 kg

DRUGS (3)
  1. LABETALOL [Concomitant]
     Active Substance: LABETALOL\LABETALOL HYDROCHLORIDE
     Indication: HYPERTENSION
     Dosage: 300 MG, 2X/DAY (300MG IN THE MORNING AND 300MG AT NIGHT)
     Route: 048
  2. CELECOXIB. [Suspect]
     Active Substance: CELECOXIB
     Indication: PAIN
  3. CELECOXIB. [Suspect]
     Active Substance: CELECOXIB
     Indication: ARTHRITIS
     Dosage: 200 MG, 2X/DAY (EVERY MORNING AND EVERY NIGHT)
     Route: 048
     Dates: start: 1999

REACTIONS (5)
  - Fall [Recovered/Resolved with Sequelae]
  - Hip fracture [Recovered/Resolved with Sequelae]
  - Upper limb fracture [Recovered/Resolved with Sequelae]
  - Drug effect incomplete [Unknown]
  - Road traffic accident [Recovered/Resolved with Sequelae]

NARRATIVE: CASE EVENT DATE: 20151128
